FAERS Safety Report 18965255 (Version 2)
Quarter: 2021Q2

REPORT INFORMATION
  Report Type: Spontaneous
  Country: US (occurrence: US)
  Receive Date: 20210304
  Receipt Date: 20210605
  Transmission Date: 20210717
  Serious: Yes (Other)
  Sender: FDA-Public Use
  Company Number: US-BRISTOL-MYERS SQUIBB COMPANY-BMS-2021-020122

PATIENT
  Age: 71 Year
  Sex: Female
  Weight: 67 kg

DRUGS (1)
  1. OPDIVO [Suspect]
     Active Substance: NIVOLUMAB
     Indication: HEPATOCELLULAR CARCINOMA
     Dosage: 240 MILLIGRAM, Q2WK
     Route: 042
     Dates: start: 20191127, end: 20200507

REACTIONS (1)
  - Malignant neoplasm progression [Unknown]
